FAERS Safety Report 15217598 (Version 1)
Quarter: 2018Q3

REPORT INFORMATION
  Report Type: Spontaneous
  Country: CA (occurrence: CA)
  Receive Date: 20180730
  Receipt Date: 20180730
  Transmission Date: 20181010
  Serious: Yes (Death)
  Sender: FDA-Public Use
  Company Number: PHHY2018CA060216

PATIENT
  Age: 40 Year
  Sex: Male

DRUGS (16)
  1. COLISTIN [Suspect]
     Active Substance: COLISTIN
     Indication: BRONCHIECTASIS
  2. TELITHROMYCIN [Suspect]
     Active Substance: TELITHROMYCIN
     Indication: INFECTIVE PULMONARY EXACERBATION OF CYSTIC FIBROSIS
     Route: 048
  3. MEROPENEM. [Suspect]
     Active Substance: MEROPENEM
     Indication: CYSTIC FIBROSIS LUNG
     Route: 042
  4. CEFTAZIDIME. [Suspect]
     Active Substance: CEFTAZIDIME
     Indication: BURKHOLDERIA CEPACIA COMPLEX INFECTION
  5. CEFTAZIDIME. [Suspect]
     Active Substance: CEFTAZIDIME
     Indication: BRONCHIECTASIS
  6. PIPERACILLIN AND TAZOBACTAM [Suspect]
     Active Substance: PIPERACILLIN SODIUM\TAZOBACTAM SODIUM
     Indication: CYSTIC FIBROSIS LUNG
     Route: 042
  7. MEROPENEM. [Suspect]
     Active Substance: MEROPENEM
     Indication: BURKHOLDERIA CEPACIA COMPLEX INFECTION
  8. MEROPENEM. [Suspect]
     Active Substance: MEROPENEM
     Indication: BRONCHIECTASIS
  9. COLISTIN [Suspect]
     Active Substance: COLISTIN
     Indication: CYSTIC FIBROSIS LUNG
     Route: 065
  10. PIPERACILLIN AND TAZOBACTAM [Suspect]
     Active Substance: PIPERACILLIN SODIUM\TAZOBACTAM SODIUM
     Indication: BRONCHIECTASIS
  11. TOBRAMYCIN. [Suspect]
     Active Substance: TOBRAMYCIN
     Indication: BURKHOLDERIA CEPACIA COMPLEX INFECTION
  12. TOBRAMYCIN. [Suspect]
     Active Substance: TOBRAMYCIN
     Indication: BRONCHIECTASIS
  13. CEFTAZIDIME. [Suspect]
     Active Substance: CEFTAZIDIME
     Indication: CYSTIC FIBROSIS LUNG
     Route: 065
  14. COLISTIN [Suspect]
     Active Substance: COLISTIN
     Indication: BURKHOLDERIA CEPACIA COMPLEX INFECTION
  15. TOBRAMYCIN. [Suspect]
     Active Substance: TOBRAMYCIN
     Indication: CYSTIC FIBROSIS LUNG
     Route: 042
  16. PIPERACILLIN AND TAZOBACTAM [Suspect]
     Active Substance: PIPERACILLIN SODIUM\TAZOBACTAM SODIUM
     Indication: BURKHOLDERIA CEPACIA COMPLEX INFECTION

REACTIONS (2)
  - Therapeutic response decreased [Fatal]
  - Drug resistance [Fatal]
